FAERS Safety Report 20729880 (Version 1)
Quarter: 2022Q2

REPORT INFORMATION
  Report Type: Spontaneous
  Country: US (occurrence: US)
  Receive Date: 20220420
  Receipt Date: 20220420
  Transmission Date: 20220720
  Serious: Yes (Hospitalization, Other)
  Sender: FDA-Public Use
  Company Number: US-CLOVIS ONCOLOGY-CLO-2022-000470

PATIENT
  Sex: Female

DRUGS (1)
  1. RUBRACA [Suspect]
     Active Substance: RUCAPARIB CAMSYLATE
     Indication: Ovarian cancer
     Dosage: 600 MILLIGRAM, BID
     Dates: start: 2019

REACTIONS (8)
  - Cerebrospinal fluid leakage [Unknown]
  - Pancreatitis [Unknown]
  - Cholelithiasis [Unknown]
  - Blood electrolytes abnormal [Unknown]
  - Vomiting [Unknown]
  - Cognitive disorder [Unknown]
  - Vitamin D abnormal [Unknown]
  - Blood calcium abnormal [Unknown]

NARRATIVE: CASE EVENT DATE: 20200101
